FAERS Safety Report 21657066 (Version 2)
Quarter: 2023Q1

REPORT INFORMATION
  Report Type: Report from Study
  Country: FR (occurrence: None)
  Receive Date: 20221129
  Receipt Date: 20230201
  Transmission Date: 20230418
  Serious: Yes (Death, Hospitalization, Other)
  Sender: FDA-Public Use
  Company Number: 2022A389966

PATIENT
  Age: 16542 Day
  Sex: Female
  Weight: 94 kg

DRUGS (10)
  1. EVUSHELD [Suspect]
     Active Substance: CILGAVIMAB\TIXAGEVIMAB
     Indication: COVID-19 prophylaxis
     Dosage: 300 MG (150 MG TIXAGEVIMAB/150 MG CILGAVIMAB) ONCE/SINGLE ADMINISTRATION
     Route: 030
     Dates: start: 20220119
  2. EVUSHELD [Suspect]
     Active Substance: CILGAVIMAB\TIXAGEVIMAB
     Indication: COVID-19 prophylaxis
     Dosage: 300 MG (150 MG TIXAGEVIMAB/150 MG CILGAVIMAB) ONCE/SINGLE ADMINISTRATION
     Route: 030
     Dates: start: 20220620
  3. EVUSHELD [Suspect]
     Active Substance: CILGAVIMAB\TIXAGEVIMAB
     Indication: COVID-19 prophylaxis
     Dosage: 300 MG (150 MG TIXAGEVIMAB/150 MG CILGAVIMAB) ONCE/SINGLE ADMINISTRATION
     Route: 030
     Dates: start: 20220623, end: 20220623
  4. ENVARSUS XR [Concomitant]
     Active Substance: TACROLIMUS
     Indication: Immunosuppressant drug therapy
     Dosage: 2 TABLETS IN THE MORNING
  5. CELLCEPT [Concomitant]
     Active Substance: MYCOPHENOLATE MOFETIL
     Indication: Immunosuppressant drug therapy
     Dosage: 1 TABLET IN THE MORNING AND 1 TABLET IN THE EVENING
  6. SOLUPRED [Concomitant]
     Dosage: 1 TABLET AND A HALF IN THE MORNING
  7. FUROSEMIDE [Concomitant]
     Active Substance: FUROSEMIDE
     Dosage: 40 MG IN THE MORNING
  8. BISOPROLOL [Concomitant]
     Active Substance: BISOPROLOL
     Dosage: 2.5 MG IN THE MORNING AND IN THE EVENING
  9. CHOLECALCIFEROL [Concomitant]
     Active Substance: CHOLECALCIFEROL
     Dosage: 100 000 UI ONE AMPOULE EVERY THREE MONTHS
  10. MIRCERA [Concomitant]
     Active Substance: METHOXY POLYETHYLENE GLYCOL-EPOETIN BETA
     Dosage: 100 MICROGRAMS EVERY 4 WEEKS

REACTIONS (10)
  - Multiple organ dysfunction syndrome [Fatal]
  - COVID-19 [Unknown]
  - Multisystem inflammatory syndrome [Unknown]
  - Necrosis [Unknown]
  - Renal failure [Unknown]
  - Toxic encephalopathy [Unknown]
  - Normocytic anaemia [Unknown]
  - Cardio-respiratory arrest [Unknown]
  - Myoclonus [Unknown]
  - Sepsis [Unknown]

NARRATIVE: CASE EVENT DATE: 20220619
